FAERS Safety Report 5689133-X (Version None)
Quarter: 2008Q1

REPORT INFORMATION
  Report Type: 
  Country: None (occurrence: None)
  Receive Date: 20080331
  Receipt Date: 19870915
  Transmission Date: 20080703
  Serious: Yes (Death)
  Sender: FDA-Public Use
  Company Number: SA-ROCHE-870103849001

PATIENT
  Age: 4 Year
  Sex: Male
  Weight: 14.5 kg

DRUGS (3)
  1. VALIUM [Suspect]
     Indication: SEDATION
     Route: 048
     Dates: start: 19870831, end: 19870831
  2. ROHYPNOL [Suspect]
     Indication: SEDATION
     Route: 048
     Dates: start: 19870831, end: 19870831
  3. XYLOCAINE [Suspect]
     Route: 058
     Dates: start: 19870831, end: 19870831

REACTIONS (1)
  - DEATH [None]
